FAERS Safety Report 20835861 (Version 2)
Quarter: 2022Q2

REPORT INFORMATION
  Report Type: Report from Study
  Country: CN (occurrence: CN)
  Receive Date: 20220516
  Receipt Date: 20220614
  Transmission Date: 20220721
  Serious: Yes (Hospitalization, Other)
  Sender: FDA-Public Use
  Company Number: CN-FOSUNKITE-FOSUNKITE-20220001

PATIENT
  Age: 64 Year
  Sex: Female

DRUGS (6)
  1. AXICABTAGENE CILOLEUCEL [Suspect]
     Active Substance: AXICABTAGENE CILOLEUCEL
     Indication: Non-Hodgkin^s lymphoma
     Dosage: 68 ML
     Route: 041
     Dates: start: 20211216, end: 20211216
  2. CYCLOPHOSPHAMIDE [Concomitant]
     Active Substance: CYCLOPHOSPHAMIDE
     Indication: Lymphodepletion
     Dosage: 750 MG
     Route: 041
     Dates: start: 20211211, end: 20211213
  3. FLUDARABINE [Concomitant]
     Active Substance: FLUDARABINE PHOSPHATE
     Indication: Lymphodepletion
     Dosage: 45 MG, QD
     Route: 041
     Dates: start: 20211211, end: 20211213
  4. ASPIRIN 1000 [Concomitant]
     Indication: Arteriosclerosis coronary artery
     Dosage: UNK
     Route: 048
  5. ATORVASTATIN [Concomitant]
     Active Substance: ATORVASTATIN
     Indication: Arteriosclerosis coronary artery
     Dosage: UNK
     Route: 048
  6. METOPROLOL SUCCINATE [Concomitant]
     Active Substance: METOPROLOL SUCCINATE
     Indication: Arteriosclerosis coronary artery
     Dosage: UNK
     Route: 048

REACTIONS (67)
  - Hypokalaemia [Recovered/Resolved]
  - Hypokalaemia [Recovered/Resolved]
  - Hypokalaemia [Recovered/Resolved]
  - Pneumonia viral [Recovered/Resolved]
  - Platelet count decreased [Recovered/Resolved]
  - Hypokalaemia [Not Recovered/Not Resolved]
  - Immune effector cell-associated neurotoxicity syndrome [Unknown]
  - White blood cell count decreased [Recovered/Resolved]
  - White blood cell count decreased [Recovered/Resolved]
  - Anaemia [Not Recovered/Not Resolved]
  - Anaemia [Not Recovered/Not Resolved]
  - White blood cell count decreased [Recovered/Resolved]
  - White blood cell count decreased [Recovered/Resolved]
  - Platelet count decreased [Not Recovered/Not Resolved]
  - Neutrophil count decreased [Recovered/Resolved]
  - Hypoalbuminaemia [Recovered/Resolved]
  - Hypoalbuminaemia [Recovered/Resolved]
  - Hyponatraemia [Recovered/Resolved]
  - Hypernatraemia [Recovered/Resolved]
  - Hypocalcaemia [Recovered/Resolved]
  - Hypophosphataemia [Recovered/Resolved]
  - Hypophosphataemia [Recovered/Resolved]
  - Alanine aminotransferase increased [Recovered/Resolved]
  - Interferon gamma level increased [Recovered/Resolved]
  - Interferon gamma level increased [Recovered/Resolved]
  - Interferon gamma level increased [Recovered/Resolved]
  - Interleukin level [Recovered/Resolved]
  - Interleukin level [Recovered/Resolved]
  - Interleukin level [Recovered/Resolved]
  - Interleukin level [Recovered/Resolved]
  - Interleukin level increased [Recovered/Resolved]
  - Interleukin level increased [Recovered/Resolved]
  - Interleukin level increased [Recovered/Resolved]
  - Interleukin-2 receptor increased [Recovered/Resolved]
  - C-reactive protein increased [Not Recovered/Not Resolved]
  - Aspartate aminotransferase increased [Recovered/Resolved]
  - Aspartate aminotransferase increased [Recovered/Resolved]
  - Blood creatine phosphokinase MB increased [Recovered/Resolved]
  - Myoglobin blood increased [Recovered/Resolved]
  - White blood cell count decreased [Recovered/Resolved]
  - White blood cell count decreased [Recovered/Resolved]
  - Neutrophil count decreased [Recovered/Resolved]
  - Hypotension [Not Recovered/Not Resolved]
  - White blood cell count decreased [Recovered/Resolved]
  - Neutrophil count decreased [Recovered/Resolved]
  - Lymphocyte count decreased [Recovered/Resolved]
  - Serum ferritin increased [Not Recovered/Not Resolved]
  - N-terminal prohormone brain natriuretic peptide increased [Recovered/Resolved]
  - N-terminal prohormone brain natriuretic peptide increased [Not Recovered/Not Resolved]
  - Procalcitonin increased [Recovered/Resolved]
  - Activated partial thromboplastin time prolonged [Recovered/Resolved]
  - Prothrombin time prolonged [Recovered/Resolved]
  - Thrombin time prolonged [Recovered/Resolved]
  - Thrombin time prolonged [Recovered/Resolved]
  - Thrombin time prolonged [Recovered/Resolved]
  - Coagulation time shortened [Recovered/Resolved]
  - Coagulation time shortened [Recovered/Resolved]
  - Coagulation time shortened [Recovered/Resolved]
  - PO2 decreased [Not Recovered/Not Resolved]
  - PCO2 decreased [Recovered/Resolved]
  - PCO2 decreased [Recovered/Resolved]
  - Oxygen saturation decreased [Not Recovered/Not Resolved]
  - Troponin increased [Recovered/Resolved]
  - Neutrophil count decreased [Recovered/Resolved]
  - Blood immunoglobulin A decreased [Not Recovered/Not Resolved]
  - Hypoalbuminaemia [Unknown]
  - Blood immunoglobulin G decreased [Recovered/Resolved]

NARRATIVE: CASE EVENT DATE: 20211217
